FAERS Safety Report 10027379 (Version 1)
Quarter: 2014Q1

REPORT INFORMATION
  Report Type: Spontaneous
  Country: BR (occurrence: BR)
  Receive Date: 20140321
  Receipt Date: 20140321
  Transmission Date: 20141002
  Serious: Yes (Hospitalization)
  Sender: FDA-Public Use
  Company Number: BR-ASTRAZENECA-2014SE18562

PATIENT
  Age: 69 Year
  Sex: Female
  Weight: 62 kg

DRUGS (5)
  1. ATENOLOL [Suspect]
     Indication: HYPERTENSION
     Route: 048
     Dates: start: 1995
  2. SEROQUEL [Suspect]
     Indication: INSOMNIA
     Route: 048
     Dates: start: 201310, end: 201310
  3. SEROQUEL [Suspect]
     Indication: INSOMNIA
     Route: 048
     Dates: start: 201312, end: 201312
  4. SEROQUEL [Suspect]
     Indication: INSOMNIA
     Route: 048
     Dates: start: 201312
  5. SIMVASTATIN [Concomitant]
     Indication: BLOOD CHOLESTEROL INCREASED
     Route: 048

REACTIONS (8)
  - Fall [Recovered/Resolved]
  - Subdural haematoma [Recovered/Resolved]
  - Blood cholesterol increased [Unknown]
  - Insomnia [Recovered/Resolved]
  - Fatigue [Recovered/Resolved]
  - Off label use [Not Recovered/Not Resolved]
  - Off label use [Recovered/Resolved]
  - Intentional drug misuse [Unknown]
